FAERS Safety Report 17646833 (Version 7)
Quarter: 2020Q2

REPORT INFORMATION
  Report Type: Report from Study
  Country: GB (occurrence: GB)
  Receive Date: 20200408
  Receipt Date: 20200505
  Transmission Date: 20200713
  Serious: Yes (Death, Hospitalization, Other)
  Sender: FDA-Public Use
  Company Number: GB-PFIZER INC-2020143092

PATIENT
  Age: 5 Year
  Sex: Male
  Weight: 19.85 kg

DRUGS (6)
  1. CRIZOTINIB [Suspect]
     Active Substance: CRIZOTINIB
     Dosage: 165 MG/M2
     Dates: start: 20200401
  2. SANDO K [Concomitant]
     Indication: BLOOD POTASSIUM DECREASED
     Dosage: 1 DF, 3X/DAY
     Route: 048
     Dates: start: 20200208
  3. COTRIMOXAZOLE [Concomitant]
     Active Substance: SULFAMETHOXAZOLE\TRIMETHOPRIM
     Indication: PROPHYLAXIS
     Dosage: 360 MG, 2X/DAY (SAT + SUN ONLY)
     Route: 048
     Dates: start: 20191116
  4. ONDANSETRON [Concomitant]
     Active Substance: ONDANSETRON
     Indication: ANTIEMETIC SUPPORTIVE CARE
     Dosage: 2 MG, 2X/DAY
     Route: 048
     Dates: start: 20191026
  5. CRIZOTINIB [Suspect]
     Active Substance: CRIZOTINIB
     Indication: LYMPHOMA
     Dosage: 280 MG/M2, 2X/DAY
     Route: 048
     Dates: start: 20200204
  6. MAGNESIUM GLYCEROPHOSPHATE [Concomitant]
     Active Substance: MAGNESIUM GLYCEROPHOSPHATE
     Indication: BLOOD MAGNESIUM DECREASED
     Dosage: 4 ML, 2X/DAY
     Route: 048
     Dates: start: 20200207

REACTIONS (8)
  - Neoplasm progression [Fatal]
  - Immune-mediated encephalitis [Unknown]
  - Nervous system disorder [Unknown]
  - Neutrophil count decreased [Recovering/Resolving]
  - Rhinitis [Unknown]
  - Acute disseminated encephalomyelitis [Unknown]
  - Pyrexia [Recovered/Resolved]
  - Central nervous system infection [Unknown]

NARRATIVE: CASE EVENT DATE: 2020
